FAERS Safety Report 4348292-1 (Version None)
Quarter: 2004Q2

REPORT INFORMATION
  Report Type: 
  Country: None (occurrence: None)
  Receive Date: 20040422
  Receipt Date: 20040414
  Transmission Date: 20050107
  Serious: Yes (Life-Threatening)
  Sender: FDA-Public Use
  Company Number: 2003180828JP

PATIENT
  Age: 53 Year
  Sex: Female
  Weight: 53.7 kg

DRUGS (28)
  1. LINEZOLID (LINEZOLID) SOLUTION, STERILE [Suspect]
     Indication: STAPHYLOCOCCAL INFECTION
     Dosage: 600 MG, BID, IV
     Route: 042
     Dates: start: 20030917, end: 20030919
  2. ZYVOX [Suspect]
     Indication: STAPHYLOCOCCAL INFECTION
     Dosage: 600 MG, BID, ORAL
     Route: 048
     Dates: start: 20030920, end: 20031002
  3. AMIKACIN SULFATE [Concomitant]
  4. PENMALIN [Concomitant]
  5. PREDONINE [Concomitant]
  6. LOXONIN (LOXOPROFEN SODIUM) [Concomitant]
  7. ZANTAC [Concomitant]
  8. ROCALTROL [Concomitant]
  9. MAGNESIUM OXIDE HEAVY [Concomitant]
  10. SELBEX (TEPRENONE) [Concomitant]
  11. VOLTAREN [Concomitant]
  12. ZOLPIDEM TARTRATE [Concomitant]
  13. PENTAGIN (PENTAZOCINE) INJECTION [Concomitant]
  14. NAUZELIN (DOMPERIDONE) [Concomitant]
  15. DEPAS (ETIZOLAM) TABLET [Concomitant]
  16. SOLU-CORTEF [Concomitant]
  17. NUTRITIONAL SUPPLEMENTS SOLUTION, STERILE [Concomitant]
  18. ATARAX [Concomitant]
  19. SOLDEM 3 [Concomitant]
  20. NEOLAMIN MULTI (VITAMINS NOS) [Concomitant]
  21. ZINC OXIDE OINTMENT (ICHTHAMMOL) [Concomitant]
  22. BISMUTH SUBGALLATE (BISMUTH SUBGALLATE) [Concomitant]
  23. SULFADIAZINE SILVER (SULFADIAZINE SILVER) [Concomitant]
  24. UREPEARL [Concomitant]
  25. MUCOSTA (REBAMIPIDE) [Concomitant]
  26. REFLAP (LYSOZYME HYDROCHLORIDE) [Concomitant]
  27. RESTAMIN [Concomitant]
  28. PREDNISOLONE [Concomitant]

REACTIONS (11)
  - BONE MARROW DEPRESSION [None]
  - CANDIDIASIS [None]
  - DEPRESSED LEVEL OF CONSCIOUSNESS [None]
  - DISSEMINATED INTRAVASCULAR COAGULATION [None]
  - GENERAL PHYSICAL HEALTH DETERIORATION [None]
  - HYPERTHERMIA [None]
  - PANCYTOPENIA [None]
  - PSEUDOMONAS INFECTION [None]
  - SEPSIS [None]
  - SHOCK [None]
  - SKIN ULCER [None]
